FAERS Safety Report 8334648-9 (Version None)
Quarter: 2012Q2

REPORT INFORMATION
  Report Type: 
  Country: None (occurrence: None)
  Receive Date: 20120503
  Receipt Date: 20110531
  Transmission Date: 20120825
  Serious: No
  Sender: FDA-Public Use
  Company Number: US-TEVA-2011001985

PATIENT
  Sex: Male
  Weight: 88.076 kg

DRUGS (3)
  1. NUVIGIL [Suspect]
     Indication: PARKINSON'S DISEASE
     Route: 048
     Dates: start: 20100701, end: 20101001
  2. LEVODOPA [Concomitant]
  3. AMANTADINE HCL [Concomitant]

REACTIONS (1)
  - DRUG INEFFECTIVE FOR UNAPPROVED INDICATION [None]
